FAERS Safety Report 18760950 (Version 1)
Quarter: 2021Q1

REPORT INFORMATION
  Report Type: Spontaneous
  Country: CN (occurrence: CN)
  Receive Date: 20210119
  Receipt Date: 20210119
  Transmission Date: 20210419
  Serious: Yes (Death)
  Sender: FDA-Public Use
  Company Number: CN-TOLMAR, INC.-21CN024955

PATIENT
  Age: 12 Day
  Sex: Male
  Weight: 3.6 kg

DRUGS (6)
  1. PHENOBARBITAL. [Suspect]
     Active Substance: PHENOBARBITAL
     Indication: EPILEPTIC ENCEPHALOPATHY
     Route: 065
  2. VITAMIN B6 [Suspect]
     Active Substance: PYRIDOXINE HYDROCHLORIDE
     Indication: EPILEPTIC ENCEPHALOPATHY
     Route: 065
  3. MIDAZOLAM. [Suspect]
     Active Substance: MIDAZOLAM
     Dosage: 0.2 MG/KG/H; TAPERED OFF IN 2 WEEKS
     Route: 041
  4. CLONAZEPAM. [Suspect]
     Active Substance: CLONAZEPAM
     Indication: EPILEPTIC ENCEPHALOPATHY
     Dosage: INITIATED ON DAY 5 OF ADMISSION; DISCHARGED 1 MONTH AFTER HOSPITALIZATION WITH CONTINUOUS ADMINISTRA
  5. MIDAZOLAM. [Suspect]
     Active Substance: MIDAZOLAM
     Indication: EPILEPTIC ENCEPHALOPATHY
     Dosage: BOLUS INTRAVENOUS INJECTION
     Route: 040
  6. LEVETIRACETAM. [Suspect]
     Active Substance: LEVETIRACETAM
     Indication: EPILEPTIC ENCEPHALOPATHY
     Dosage: INITIATED ON DAY 5 OF ADMISSION; DISCHARGED 1 MONTH AFTER HOSPITALIZATION WITH CONTINUOUS ADMINISTRA

REACTIONS (2)
  - Off label use [Unknown]
  - Cardio-respiratory arrest neonatal [Fatal]
